FAERS Safety Report 6188895-5 (Version None)
Quarter: 2009Q2

REPORT INFORMATION
  Report Type: 
  Country: None (occurrence: None)
  Receive Date: 20090513
  Receipt Date: 20090506
  Transmission Date: 20091009
  Serious: Yes (Other)
  Sender: FDA-Public Use
  Company Number: PHHY2009CA15356

PATIENT
  Sex: Female

DRUGS (3)
  1. ACLASTA [Suspect]
     Indication: OSTEOPOROSIS
     Dosage: UNK
     Dates: start: 20090408
  2. ADVAIR HFA [Concomitant]
     Dosage: 500 UG/DAY
  3. SPIRIVA [Concomitant]
     Dosage: 18 UG/DAY

REACTIONS (10)
  - BACTERIAL INFECTION [None]
  - GINGIVAL PAIN [None]
  - LIP SWELLING [None]
  - OEDEMA MOUTH [None]
  - ORAL HERPES [None]
  - PRURITUS [None]
  - PYREXIA [None]
  - RASH PUSTULAR [None]
  - SWELLING FACE [None]
  - TOOTHACHE [None]
